FAERS Safety Report 19660263 (Version 2)
Quarter: 2021Q3

REPORT INFORMATION
  Report Type: Spontaneous
  Country: ES (occurrence: ES)
  Receive Date: 20210805
  Receipt Date: 20210916
  Transmission Date: 20211014
  Serious: Yes (Other)
  Sender: FDA-Public Use
  Company Number: ES-GLAXOSMITHKLINE-ES2021EME163333

PATIENT
  Sex: Female

DRUGS (1)
  1. LAMICTAL [Suspect]
     Active Substance: LAMOTRIGINE
     Indication: MACULAR DEGENERATION
     Dosage: 100 MG

REACTIONS (12)
  - Condition aggravated [Unknown]
  - Choroidal effusion [Unknown]
  - Hiatus hernia [Unknown]
  - Diarrhoea [Unknown]
  - Adverse drug reaction [Unknown]
  - Wrong technique in product usage process [Unknown]
  - Gastric disorder [Unknown]
  - Irritable bowel syndrome [Unknown]
  - Abdominal pain upper [Unknown]
  - Visual impairment [Unknown]
  - Drug intolerance [Unknown]
  - Retinal haemorrhage [Recovered/Resolved]

NARRATIVE: CASE EVENT DATE: 2021
